FAERS Safety Report 21675463 (Version 2)
Quarter: 2022Q4

REPORT INFORMATION
  Report Type: Report from Study
  Country: CA (occurrence: CA)
  Receive Date: 20221202
  Receipt Date: 20221216
  Transmission Date: 20230112
  Serious: Yes (Other)
  Sender: FDA-Public Use
  Company Number: CA-BAYER-2022P024042

PATIENT
  Age: 26 Year
  Sex: Female

DRUGS (1)
  1. KYLEENA [Suspect]
     Active Substance: LEVONORGESTREL
     Indication: Contraception
     Dosage: 17.5?G/DAY
     Route: 015
     Dates: start: 20221124

REACTIONS (3)
  - Device breakage [None]
  - Complication of device insertion [None]
  - Expired device used [None]

NARRATIVE: CASE EVENT DATE: 20221124
